FAERS Safety Report 25814839 (Version 1)
Quarter: 2025Q3

REPORT INFORMATION
  Report Type: Other
  Country: US (occurrence: US)
  Receive Date: 20250918
  Receipt Date: 20250918
  Transmission Date: 20251021
  Serious: No
  Sender: TRAVERE THERAPEUTICS
  Company Number: US-TRAVERE-2025TVT01199

PATIENT
  Sex: Male

DRUGS (1)
  1. FILSPARI [Suspect]
     Active Substance: SPARSENTAN
     Indication: Chronic kidney disease
     Dosage: 200 MG (ONE TABLET BY MOUTH ONCE DAILY ON DAY 1 THROUGH 14 THEN TAKE 2 TABLET BY MOUTH ONCE DAILY)
     Route: 048

REACTIONS (1)
  - Product use in unapproved indication [Unknown]
